FAERS Safety Report 14022019 (Version 4)
Quarter: 2018Q1

REPORT INFORMATION
  Report Type: Report from Study
  Country: US (occurrence: US)
  Receive Date: 20170928
  Receipt Date: 20180117
  Transmission Date: 20180508
  Serious: Yes (Hospitalization)
  Sender: FDA-Public Use
  Company Number: US-EXELIXIS-CABO-17010605

PATIENT
  Sex: Male

DRUGS (8)
  1. CALCITRIOL. [Concomitant]
     Active Substance: CALCITRIOL
  2. COMETRIQ [Suspect]
     Active Substance: CABOZANTINIB S-MALATE
     Dosage: 140 MG, QD
     Route: 048
     Dates: start: 2017
  3. LEVOTHYROXINE SODIUM. [Concomitant]
     Active Substance: LEVOTHYROXINE SODIUM
  4. HERBAL EXTRACT NOS [Concomitant]
     Active Substance: HERBALS
  5. HYDROCODONE/ACETAMINOPHEN [Concomitant]
     Active Substance: ACETAMINOPHEN\HYDROCODONE
  6. CALCIUM [Concomitant]
     Active Substance: CALCIUM
  7. COMETRIQ [Suspect]
     Active Substance: CABOZANTINIB S-MALATE
     Indication: THYROID CANCER
     Dosage: 140 MG, QD
     Route: 048
     Dates: end: 201709
  8. LIOTHYRONINE [Concomitant]
     Active Substance: LIOTHYRONINE

REACTIONS (5)
  - Dry skin [Unknown]
  - Middle insomnia [Unknown]
  - Nodule [Unknown]
  - Diarrhoea [Not Recovered/Not Resolved]
  - Gallbladder disorder [Unknown]
